FAERS Safety Report 6247296-1 (Version None)
Quarter: 2009Q2

REPORT INFORMATION
  Report Type: 
  Country: None (occurrence: None)
  Receive Date: 20090626
  Receipt Date: 20090619
  Transmission Date: 20091009
  Serious: Yes (Death, Hospitalization)
  Sender: FDA-Public Use
  Company Number: A0793538A

PATIENT
  Sex: Male
  Weight: 80 kg

DRUGS (5)
  1. SERETIDE [Suspect]
     Indication: ASTHMA
     Dosage: 1PUFF TWICE PER DAY
     Route: 055
     Dates: start: 20080201, end: 20090128
  2. NORETHISTERONE [Concomitant]
     Dates: start: 20080301, end: 20090128
  3. MESTRANOL TAB [Concomitant]
     Dates: start: 20080301, end: 20090128
  4. PYRIDOXINE HYDROCHLORIDE [Concomitant]
     Dates: start: 20080328, end: 20090128
  5. CLONAZEPAM [Concomitant]
     Dates: start: 20080301, end: 20090128

REACTIONS (2)
  - RENAL NEOPLASM [None]
  - RESPIRATORY ARREST [None]
